FAERS Safety Report 6024471-2 (Version None)
Quarter: 2008Q4

REPORT INFORMATION
  Report Type: 
  Country: None (occurrence: None)
  Receive Date: 20081231
  Receipt Date: 20081103
  Transmission Date: 20090506
  Serious: No
  Sender: FDA-Public Use
  Company Number: US-BRISTOL-MYERS SQUIBB COMPANY-14316954

PATIENT
  Age: 55 Year
  Sex: Female

DRUGS (9)
  1. ORENCIA [Suspect]
     Indication: RHEUMATOID ARTHRITIS
     Dosage: DOSE INCREASED RECENTLY
     Route: 042
     Dates: start: 20080426
  2. PREDNISONE [Suspect]
  3. METHOTREXATE [Suspect]
  4. HYDROXYCHLOROQUINE SULFATE [Suspect]
  5. FOLIC ACID [Suspect]
  6. TRAMADOL [Suspect]
  7. FOSAMAX [Suspect]
  8. VICODIN [Suspect]
  9. CLARITIN [Suspect]

REACTIONS (5)
  - CHILLS [None]
  - FATIGUE [None]
  - HEADACHE [None]
  - PYREXIA [None]
  - RASH [None]
